FAERS Safety Report 13753373 (Version 1)
Quarter: 2017Q3

REPORT INFORMATION
  Report Type: Spontaneous
  Country: FR (occurrence: FR)
  Receive Date: 20170714
  Receipt Date: 20170714
  Transmission Date: 20171127
  Serious: Yes (Hospitalization, Other)
  Sender: FDA-Public Use
  Company Number: FR-VIIV HEALTHCARE LIMITED-FR2017GSK106606

PATIENT
  Age: 0 Day
  Sex: Female

DRUGS (6)
  1. NORVIR [Suspect]
     Active Substance: RITONAVIR
     Dosage: UNK
     Route: 064
     Dates: start: 20161130, end: 20170612
  2. NORVIR [Suspect]
     Active Substance: RITONAVIR
     Indication: PRODUCT USED FOR UNKNOWN INDICATION
     Dosage: UNK
     Route: 064
     Dates: start: 20150303
  3. KIVEXA [Suspect]
     Active Substance: ABACAVIR SULFATE\LAMIVUDINE
     Dosage: UNK
     Route: 064
     Dates: start: 20161130, end: 20170612
  4. PREZISTA [Suspect]
     Active Substance: DARUNAVIR ETHANOLATE
     Indication: PRODUCT USED FOR UNKNOWN INDICATION
     Dosage: UNK
     Route: 064
     Dates: start: 20150303
  5. KIVEXA [Suspect]
     Active Substance: ABACAVIR SULFATE\LAMIVUDINE
     Indication: PRODUCT USED FOR UNKNOWN INDICATION
     Dosage: UNK
     Route: 064
     Dates: start: 20150303
  6. PREZISTA [Suspect]
     Active Substance: DARUNAVIR ETHANOLATE
     Dosage: UNK
     Route: 064
     Dates: start: 20161130, end: 20170612

REACTIONS (4)
  - Foetal exposure during pregnancy [Unknown]
  - Premature baby [Unknown]
  - Foetal heart rate disorder [Unknown]
  - Foetal growth restriction [Unknown]

NARRATIVE: CASE EVENT DATE: 20170612
